FAERS Safety Report 21813362 (Version 2)
Quarter: 2023Q2

REPORT INFORMATION
  Report Type: Report from Study
  Country: BR (occurrence: BR)
  Receive Date: 20230103
  Receipt Date: 20230619
  Transmission Date: 20230721
  Serious: Yes (Other)
  Sender: FDA-Public Use
  Company Number: BR-CELLTRION INC.-2022BR021918

PATIENT

DRUGS (6)
  1. INFLIXIMAB [Suspect]
     Active Substance: INFLIXIMAB
     Indication: Crohn^s disease
     Dosage: 4 AMPOULES (100 MG EACH) EVERY 8 WEEK
     Route: 042
  2. ACETAMINOPHEN\CODEINE PHOSPHATE [Concomitant]
     Active Substance: ACETAMINOPHEN\CODEINE PHOSPHATE
     Indication: Arthralgia
     Dosage: 3CP/DAY
     Route: 048
     Dates: start: 20221001, end: 20221007
  3. TRAMADOL [Concomitant]
     Active Substance: TRAMADOL
     Indication: Arthralgia
     Dosage: 1CP/DAY
     Route: 048
     Dates: start: 20221007
  4. ARCOXIA [Concomitant]
     Active Substance: ETORICOXIB
     Indication: Arthralgia
     Dosage: 2CP/DAY
     Route: 048
     Dates: start: 20221007
  5. OMEPRAZOLE [Concomitant]
     Active Substance: OMEPRAZOLE
     Indication: Gastritis erosive
     Dosage: 1CP/DAY (STARTED 15 YEARS AGO)
     Route: 048
  6. OMEPRAZOLE [Concomitant]
     Active Substance: OMEPRAZOLE
     Indication: Dyspepsia
     Dosage: 1 TABLET A DAY

REACTIONS (5)
  - COVID-19 [Recovered/Resolved]
  - Decreased appetite [Recovered/Resolved]
  - Dysgeusia [Recovered/Resolved]
  - Malaise [Recovered/Resolved]
  - Intentional dose omission [Unknown]

NARRATIVE: CASE EVENT DATE: 20221213
